FAERS Safety Report 22027990 (Version 1)
Quarter: 2023Q1

REPORT INFORMATION
  Report Type: Spontaneous
  Country: US (occurrence: None)
  Receive Date: 20230220
  Receipt Date: 20230220
  Transmission Date: 20230418
  Serious: Yes (unspecified)
  Sender: FDA-Public Use
  Company Number: None

PATIENT
  Age: 36 Year
  Sex: Female

DRUGS (2)
  1. DUPIXENT [Suspect]
     Active Substance: DUPILUMAB
     Dosage: OTHER FREQUENCY : EVERY OTHER WEEK;?
     Route: 058
  2. dupixent 300mg pen [Concomitant]
     Dates: start: 20230117, end: 20230220

REACTIONS (3)
  - Pruritus [None]
  - Injection site swelling [None]
  - Injection site bruising [None]
